FAERS Safety Report 17408350 (Version 3)
Quarter: 2020Q1

REPORT INFORMATION
  Report Type: Other
  Country: AU (occurrence: AU)
  Receive Date: 20200212
  Receipt Date: 20200319
  Transmission Date: 20200409
  Serious: Yes (Death, Hospitalization)
  Sender: FDA-Public Use
  Company Number: GB-RECORDATI RARE DISEASES-2080182

PATIENT
  Age: 14 Year
  Sex: Female

DRUGS (5)
  1. CYSTADANE [Suspect]
     Active Substance: BETAINE
  2. PYRIDOXINE [Concomitant]
     Active Substance: PYRIDOXINE
  3. CYCLOSPORINE. [Concomitant]
     Active Substance: CYCLOSPORINE
  4. PREDNISOLONE. [Concomitant]
     Active Substance: PREDNISOLONE
  5. CYSTADANE [Suspect]
     Active Substance: BETAINE
     Indication: HOMOCYSTINURIA

REACTIONS (10)
  - Parkinsonism [Unknown]
  - Dyskinesia [Unknown]
  - White matter lesion [Unknown]
  - Hypermethioninaemia [Unknown]
  - Intracranial pressure increased [Unknown]
  - Pancreatitis [Fatal]
  - Colitis ulcerative [Unknown]
  - Multiple organ dysfunction syndrome [Fatal]
  - Brain oedema [Unknown]
  - Encephalopathy [Unknown]
